FAERS Safety Report 8448787-5 (Version None)
Quarter: 2012Q2

REPORT INFORMATION
  Report Type: 
  Country: None (occurrence: None)
  Receive Date: 20120619
  Receipt Date: 20120615
  Transmission Date: 20120825
  Serious: Yes (Death, Hospitalization)
  Sender: FDA-Public Use
  Company Number: ES-PFIZER INC-2012137926

PATIENT
  Age: 11 Year
  Sex: Male

DRUGS (1)
  1. SOMATROPIN [Suspect]
     Indication: HYPOPITUITARISM
     Dosage: 1 MG, 1X/DAY
     Dates: start: 20110606

REACTIONS (2)
  - PYREXIA [None]
  - SEPSIS [None]
